FAERS Safety Report 4811194-8 (Version None)
Quarter: 2005Q4

REPORT INFORMATION
  Report Type: 
  Country: None (occurrence: None)
  Receive Date: 20051027
  Receipt Date: 20051024
  Transmission Date: 20060501
  Serious: Yes (Death, Hospitalization)
  Sender: FDA-Public Use
  Company Number: US-JNJFOC-20051002405

PATIENT
  Age: 92 Year
  Sex: Female
  Weight: 63.96 kg

DRUGS (1)
  1. DURAGESIC-100 [Suspect]
     Route: 062

REACTIONS (5)
  - FALL [None]
  - FEMORAL NECK FRACTURE [None]
  - MULTI-ORGAN FAILURE [None]
  - PUBIC RAMI FRACTURE [None]
  - SPINAL FRACTURE [None]
